FAERS Safety Report 25831186 (Version 2)
Quarter: 2025Q3

REPORT INFORMATION
  Report Type: Spontaneous
  Country: JP (occurrence: JP)
  Receive Date: 20250922
  Receipt Date: 20250929
  Transmission Date: 20251020
  Serious: Yes (Life-Threatening, Hospitalization)
  Sender: MACLEODS
  Company Number: JP-MACLEODS PHARMA-MAC2025055306

PATIENT

DRUGS (5)
  1. TRIAMCINOLONE ACETONIDE [Suspect]
     Active Substance: TRIAMCINOLONE ACETONIDE
     Indication: Pain in extremity
     Route: 014
  2. TRIAMCINOLONE ACETONIDE [Suspect]
     Active Substance: TRIAMCINOLONE ACETONIDE
     Indication: Pain in extremity
  3. CEPHALEXIN [Concomitant]
     Active Substance: CEPHALEXIN
     Route: 048
  4. METHOTREXATE [Concomitant]
     Active Substance: METHOTREXATE
     Indication: Rheumatoid arthritis
     Route: 065
  5. BUDESONIDE [Concomitant]
     Active Substance: BUDESONIDE
     Indication: Asthma
     Route: 065

REACTIONS (6)
  - Condition aggravated [Recovered/Resolved]
  - Immunosuppression [Unknown]
  - Resorption bone increased [Recovered/Resolved]
  - Mycobacterium avium complex infection [Recovered/Resolved]
  - Osteomyelitis [Recovered/Resolved]
  - Tenosynovitis [Recovered/Resolved]
